FAERS Safety Report 7609563-6 (Version None)
Quarter: 2011Q3

REPORT INFORMATION
  Report Type: 
  Country: None (occurrence: None)
  Receive Date: 20110706
  Receipt Date: 20110620
  Transmission Date: 20111222
  Serious: Yes (Other)
  Sender: FDA-Public Use
  Company Number: 1000021824

PATIENT

DRUGS (1)
  1. ESCITALOPRAM [Suspect]

REACTIONS (2)
  - WEIGHT INCREASED [None]
  - ABSCESS ORAL [None]
